FAERS Safety Report 9602206 (Version 6)
Quarter: 2014Q4

REPORT INFORMATION
  Report Type: Report from Study
  Country: CN (occurrence: CN)
  Receive Date: 20131007
  Receipt Date: 20141202
  Transmission Date: 20150529
  Serious: Yes (Death, Hospitalization, Other)
  Sender: FDA-Public Use
  Company Number: CN-ASTELLAS-2013US010279

PATIENT
  Age: 90 Year
  Sex: Female

DRUGS (4)
  1. ERLOTINIB [Suspect]
     Active Substance: ERLOTINIB
     Route: 048
     Dates: start: 2013
  2. ERLOTINIB [Suspect]
     Active Substance: ERLOTINIB
     Route: 048
     Dates: start: 20130912, end: 2013
  3. ERLOTINIB [Suspect]
     Active Substance: ERLOTINIB
     Route: 048
  4. ERLOTINIB [Suspect]
     Active Substance: ERLOTINIB
     Indication: NON-SMALL CELL LUNG CANCER
     Route: 048
     Dates: start: 20130723, end: 20130912

REACTIONS (9)
  - Cough [Unknown]
  - Red blood cell count decreased [Recovering/Resolving]
  - Chest discomfort [Unknown]
  - Depressed level of consciousness [Unknown]
  - Nasopharyngitis [Not Recovered/Not Resolved]
  - White blood cell count decreased [Recovering/Resolving]
  - Dizziness [Unknown]
  - Pyrexia [Fatal]
  - Gait disturbance [Unknown]

NARRATIVE: CASE EVENT DATE: 201307
